FAERS Safety Report 15316918 (Version 2)
Quarter: 2019Q2

REPORT INFORMATION
  Report Type: Spontaneous
  Country: US (occurrence: US)
  Receive Date: 20180824
  Receipt Date: 20190507
  Transmission Date: 20190711
  Serious: No
  Sender: FDA-Public Use
  Company Number: US-PFIZER INC-2018340945

PATIENT
  Age: 63 Year
  Sex: Male

DRUGS (2)
  1. EUCRISA [Suspect]
     Active Substance: CRISABOROLE
     Indication: DERMATITIS ATOPIC
     Dosage: UNK
     Route: 061
  2. EUCRISA [Suspect]
     Active Substance: CRISABOROLE
     Indication: ECZEMA

REACTIONS (3)
  - Application site erythema [Unknown]
  - Drug ineffective [Not Recovered/Not Resolved]
  - Application site irritation [Unknown]
